FAERS Safety Report 9792921 (Version 2)
Quarter: 2014Q1

REPORT INFORMATION
  Report Type: Report from Study
  Country: US (occurrence: US)
  Receive Date: 20140102
  Receipt Date: 20140317
  Transmission Date: 20141002
  Serious: Yes (Hospitalization)
  Sender: FDA-Public Use
  Company Number: US-SA-2013SA129362

PATIENT
  Age: 61 Year
  Sex: Male

DRUGS (8)
  1. AUBAGIO [Suspect]
     Indication: MULTIPLE SCLEROSIS
     Route: 048
     Dates: start: 20130903, end: 201402
  2. AUBAGIO [Suspect]
     Indication: MULTIPLE SCLEROSIS
     Route: 048
     Dates: start: 201402
  3. CELEXA [Concomitant]
  4. AMLODIPINE [Concomitant]
  5. BACLOFEN [Concomitant]
  6. DICLOFENAC POTASSIUM [Concomitant]
  7. ZONISAMIDE [Concomitant]
  8. VITAMIN D3 [Concomitant]

REACTIONS (2)
  - Spinal fusion surgery [Unknown]
  - Gait disturbance [Recovering/Resolving]
